FAERS Safety Report 5835164-6 (Version None)
Quarter: 2008Q3

REPORT INFORMATION
  Report Type: 
  Country: None (occurrence: None)
  Receive Date: 20080729
  Receipt Date: 20070822
  Transmission Date: 20090109
  Serious: Yes (Hospitalization)
  Sender: FDA-Public Use
  Company Number: 07H-163-0313028-00

PATIENT
  Age: 74 Year
  Sex: Female
  Weight: 52.1637 kg

DRUGS (1)
  1. LIDOCAINE HCL 1% + EPI. 1:100,000 INJECTION,  (LIDOCAINE HYDROCHLORIDE [Suspect]
     Indication: LOCAL ANAESTHESIA
     Dosage: 6-12 CC, INJECTION
     Route: 042
     Dates: start: 20070806, end: 20070806

REACTIONS (1)
  - HYPERSENSITIVITY [None]
